FAERS Safety Report 6573871-0 (Version None)
Quarter: 2010Q1

REPORT INFORMATION
  Report Type: 
  Country: None (occurrence: None)
  Receive Date: 20100208
  Receipt Date: 20100128
  Transmission Date: 20100710
  Serious: Yes (Death, Hospitalization)
  Sender: FDA-Public Use
  Company Number: FR-KINGPHARMUSA00001-K201000108

PATIENT
  Age: 87 Year
  Sex: Female

DRUGS (14)
  1. ALTACE [Suspect]
     Dosage: 10 MG, QD
     Route: 048
     Dates: start: 20080102, end: 20090716
  2. HERACILLIN [Suspect]
     Indication: LOCALISED INFECTION
     Dosage: 750 MG, QD
     Route: 048
     Dates: start: 20090702, end: 20090709
  3. ENTOCORT EC [Concomitant]
  4. SELOKEN ZOC/ASA [Concomitant]
  5. ALVEDON [Concomitant]
  6. PROPAVAN [Concomitant]
  7. WARAN [Concomitant]
  8. BEHEPAN [Concomitant]
  9. MORPHINE [Concomitant]
  10. GLYCERYL TRINITRATE [Concomitant]
  11. MORPHINE [Concomitant]
  12. LASIX [Concomitant]
  13. FURIX [Concomitant]
  14. IMDUR [Concomitant]

REACTIONS (10)
  - ANURIA [None]
  - APATHY [None]
  - ARTHRALGIA [None]
  - BLOOD CREATININE INCREASED [None]
  - BLOOD PRESSURE SYSTOLIC DECREASED [None]
  - C-REACTIVE PROTEIN INCREASED [None]
  - DIARRHOEA [None]
  - LOCALISED INFECTION [None]
  - PETECHIAE [None]
  - RENAL FAILURE ACUTE [None]
